FAERS Safety Report 11999042 (Version 2)
Quarter: 2016Q1

REPORT INFORMATION
  Report Type: Report from Study
  Country: US (occurrence: US)
  Receive Date: 20160204
  Receipt Date: 20160310
  Transmission Date: 20160526
  Serious: No
  Sender: FDA-Public Use
  Company Number: US-AMGEN-USASL2016010977

PATIENT
  Age: 54 Year
  Sex: Female

DRUGS (1)
  1. ENBREL [Suspect]
     Active Substance: ETANERCEPT
     Indication: RHEUMATOID ARTHRITIS
     Dosage: 25 MG, QWK
     Route: 065
     Dates: start: 20070425

REACTIONS (14)
  - Malaise [Unknown]
  - Throat irritation [Unknown]
  - Sneezing [Recovered/Resolved]
  - Pain [Unknown]
  - Needle issue [Unknown]
  - Nasopharyngitis [Unknown]
  - Sputum discoloured [Recovered/Resolved]
  - Arthralgia [Unknown]
  - In vitro fertilisation [Unknown]
  - Bacterial infection [Recovered/Resolved]
  - Decreased immune responsiveness [Unknown]
  - Pyrexia [Unknown]
  - Device issue [Unknown]
  - Cough [Recovered/Resolved]
